FAERS Safety Report 4924084-7 (Version None)
Quarter: 2006Q1

REPORT INFORMATION
  Report Type: 
  Country: None (occurrence: None)
  Receive Date: 20060227
  Receipt Date: 20051110
  Transmission Date: 20060701
  Serious: No
  Sender: FDA-Public Use
  Company Number: US-GLAXOSMITHKLINE-A0581782A

PATIENT
  Age: 59 Year
  Sex: Male

DRUGS (3)
  1. WELLBUTRIN XL [Suspect]
     Indication: ANXIETY
     Dosage: 150MG PER DAY
     Route: 048
     Dates: start: 20051001
  2. NEUROVITAN [Concomitant]
  3. PREDNISOLONE EYE DROPS [Concomitant]

REACTIONS (2)
  - DRY EYE [None]
  - DRY MOUTH [None]
